FAERS Safety Report 25973622 (Version 2)
Quarter: 2025Q4

REPORT INFORMATION
  Report Type: Spontaneous
  Country: JP (occurrence: JP)
  Receive Date: 20251029
  Receipt Date: 20251231
  Transmission Date: 20260118
  Serious: Yes (Hospitalization, Other)
  Sender: ROCHE
  Company Number: JP-CHUGAI-2025033782

PATIENT
  Age: 77 Year
  Sex: Male

DRUGS (2)
  1. TAMIFLU [Suspect]
     Active Substance: OSELTAMIVIR PHOSPHATE
     Indication: Influenza
     Route: 048
  2. METFORMIN HYDROCHLORIDE [Concomitant]
     Active Substance: METFORMIN HYDROCHLORIDE
     Indication: Type 2 diabetes mellitus
     Dosage: UNK

REACTIONS (3)
  - Rhabdomyolysis [Unknown]
  - Metabolic acidosis [Unknown]
  - Acute kidney injury [Unknown]
